FAERS Safety Report 20054371 (Version 3)
Quarter: 2021Q4

REPORT INFORMATION
  Report Type: Report from Study
  Country: US (occurrence: US)
  Receive Date: 20211110
  Receipt Date: 20211208
  Transmission Date: 20220303
  Serious: Yes (Other)
  Sender: FDA-Public Use
  Company Number: US-SHIRE-US201924458AA

PATIENT
  Sex: Male

DRUGS (1)
  1. HUMAN IMMUNOGLOBULIN G [Suspect]
     Active Substance: HUMAN IMMUNOGLOBULIN G
     Indication: Primary immunodeficiency syndrome
     Dosage: UNK
     Route: 042

REACTIONS (9)
  - Nasopharyngitis [Unknown]
  - Disturbance in attention [Unknown]
  - Sinus disorder [Unknown]
  - Restless legs syndrome [Unknown]
  - Nasal septum deviation [Unknown]
  - Fatigue [Unknown]
  - Product administration interrupted [Unknown]
  - Therapy interrupted [Unknown]
  - Viral infection [Unknown]
